FAERS Safety Report 8613099-3 (Version None)
Quarter: 2012Q3

REPORT INFORMATION
  Report Type: 
  Country: None (occurrence: None)
  Receive Date: 20120822
  Receipt Date: 20120727
  Transmission Date: 20120928
  Serious: Yes (Other)
  Sender: FDA-Public Use
  Company Number: JP-009507513-2012SP026634

PATIENT

DRUGS (31)
  1. PEG-INTRON [Suspect]
     Dosage: 1.1  MICROGRAM PER KILOGRAM, PER WEEK
     Route: 058
  2. PEG-INTRON [Suspect]
     Dosage: 1.0MCG/KG/WEEK
     Route: 058
     Dates: start: 20120418, end: 20120704
  3. SODIUM FERROUS CITRATE [Concomitant]
     Indication: IRON DEFICIENCY ANAEMIA
     Dosage: 100 MG, QD
     Route: 048
  4. REBETOL [Suspect]
     Indication: HEPATITIS C
     Dosage: 200 MG, QD
     Route: 048
     Dates: start: 20120121, end: 20120228
  5. REBETOL [Suspect]
     Dosage: 200 MG, ONCE
     Route: 048
     Dates: start: 20120418, end: 20120501
  6. REBETOL [Suspect]
     Dosage: 600 MG, ONCE
     Route: 048
     Dates: start: 20120530, end: 20120704
  7. PEG-INTRON [Suspect]
     Dosage: 1.0MCG/KG/WEEK
     Route: 058
     Dates: start: 20120127
  8. NORVASC [Concomitant]
     Indication: HYPERTENSION
     Dosage: 2.5 MG, QD
     Route: 048
  9. EPADEL S [Concomitant]
     Indication: HYPERLIPIDAEMIA
     Dosage: 1800 MG, ONCE
     Route: 048
  10. PEGINTERFERON ALFA-2B [Suspect]
     Indication: HEPATITIS C
     Dosage: 1.5 ?G/KG, QW
     Route: 058
     Dates: start: 20120121
  11. TELAVIC [Suspect]
     Indication: HEPATITIS C
     Dosage: 1500 MG, ONCE
     Route: 048
     Dates: start: 20120121, end: 20120410
  12. EPADEL [Concomitant]
     Indication: HYPERLIPIDAEMIA
     Dosage: 1800 MG, QD
     Route: 048
  13. CLARITIN REDITABS [Concomitant]
     Dosage: 10 MG, ONCE
     Route: 048
  14. RABEPRAZOLE SODIUM [Concomitant]
     Dosage: 10 MG, ONCE
     Route: 048
  15. NORVASC [Concomitant]
     Dosage: 2.5 MG, ONCE
     Route: 048
  16. LIVALO [Concomitant]
     Indication: HYPERLIPIDAEMIA
     Dosage: 1 MG, QD
     Route: 048
  17. LIVALO [Concomitant]
     Dosage: 1 MG, ONCE
     Route: 048
  18. PEGINTERFERON ALFA-2B [Suspect]
     Dosage: 1.1 ?G/KG, QW
     Route: 058
  19. REBETOL [Suspect]
     Dosage: 400 MG, QD
     Route: 048
     Dates: start: 20120229
  20. ANTIVIRAL (UNSPECIFIED) [Suspect]
     Indication: HEPATITIS C
     Dosage: 1500 MG, QD
     Route: 048
     Dates: start: 20120121, end: 20120410
  21. BONALON BAG [Concomitant]
     Dosage: 35 MG, ONCE
     Route: 048
  22. REBETOL [Suspect]
     Dosage: 200 MG, QD
     Route: 048
     Dates: start: 20120314
  23. PEG-INTRON [Suspect]
     Indication: HEPATITIS C
     Dosage: 1.0 MICROGRAM PER KILOGRAM, PER WEEK
     Route: 058
     Dates: start: 20120121
  24. CLARITIN REDITABS [Concomitant]
     Indication: PROPHYLAXIS
     Dosage: 10 MG, QD
     Route: 048
  25. DOGMATYL [Concomitant]
     Indication: GASTRITIS
     Dosage: 100 MG, QD
     Route: 048
  26. DOGMATYL [Concomitant]
     Dosage: 100 MG, ONCE
     Route: 048
  27. PEGINTERFERON ALFA-2B [Suspect]
     Dosage: 1.0 ?G/KG, QW
     Route: 058
     Dates: start: 20120127
  28. REBETOL [Suspect]
     Dosage: 400 MG, ONCE
     Route: 048
     Dates: start: 20120502, end: 20120529
  29. RABEPRAZOLE SODIUM [Concomitant]
     Indication: GASTRIC ULCER
     Dosage: 10 MG, QD
     Route: 048
  30. BONALON BAG [Concomitant]
     Dosage: 35 G, QD
     Route: 048
  31. FEROTYM [Concomitant]
     Indication: IRON DEFICIENCY ANAEMIA
     Dosage: 100 MG, ONCE
     Route: 048

REACTIONS (1)
  - ANAEMIA [None]
